FAERS Safety Report 7078783-4 (Version None)
Quarter: 2010Q4

REPORT INFORMATION
  Report Type: 
  Country: None (occurrence: None)
  Receive Date: 20101101
  Receipt Date: 20101101
  Transmission Date: 20110411
  Serious: Yes (Other)
  Sender: FDA-Public Use
  Company Number: None

PATIENT
  Age: 66 Year
  Sex: Male
  Weight: 67.1324 kg

DRUGS (2)
  1. ZOLOFT [Suspect]
     Indication: ANXIETY
     Dosage: 150 MG DAILY PO
     Route: 048
     Dates: start: 20090101, end: 20101013
  2. DOXEPIN 150MG UNKNOWN [Suspect]
     Indication: SOMNOLENCE
     Dosage: 150MG DAILY PO
     Route: 048
     Dates: start: 20000101, end: 20101028

REACTIONS (2)
  - CONFUSIONAL STATE [None]
  - TARDIVE DYSKINESIA [None]
